FAERS Safety Report 7122810-2 (Version None)
Quarter: 2010Q4

REPORT INFORMATION
  Report Type: 
  Country: None (occurrence: None)
  Receive Date: 20101124
  Receipt Date: 20101116
  Transmission Date: 20110411
  Serious: Yes (Other)
  Sender: FDA-Public Use
  Company Number: US-ABBOTT-10P-163-0686053-00

PATIENT
  Sex: Female
  Weight: 51.302 kg

DRUGS (4)
  1. LUPRON DEPOT [Suspect]
     Indication: ENDOMETRIOSIS
     Route: 030
     Dates: start: 20100113, end: 20100422
  2. NORETHINDRONE [Suspect]
     Indication: HORMONE REPLACEMENT THERAPY
     Dates: start: 20100101, end: 20100402
  3. VICODIN [Concomitant]
     Indication: PELVIC PAIN
     Dosage: NORMAL DOSE, PRN
  4. PERCOCET [Concomitant]
     Indication: PELVIC PAIN
     Dosage: 5/325MG, PRN

REACTIONS (5)
  - CONCUSSION [None]
  - DIZZINESS [None]
  - FALL [None]
  - HEAD INJURY [None]
  - LOSS OF CONSCIOUSNESS [None]
